FAERS Safety Report 16201359 (Version 2)
Quarter: 2019Q2

REPORT INFORMATION
  Report Type: Report from Study
  Country: NL (occurrence: NL)
  Receive Date: 20190416
  Receipt Date: 20190506
  Transmission Date: 20190711
  Serious: Yes (Other)
  Sender: FDA-Public Use
  Company Number: NL-TOLMAR, INC.-2019NL003701

PATIENT

DRUGS (5)
  1. ELIGARD [Suspect]
     Active Substance: LEUPROLIDE ACETATE
     Indication: PROSTATE CANCER METASTATIC
     Dosage: 45 MG, 1X/6 MONTHS
     Route: 058
     Dates: start: 20181008
  2. FOSINOPRIL [Concomitant]
     Active Substance: FOSINOPRIL
  3. SIMVASTATINE [Concomitant]
     Active Substance: SIMVASTATIN
  4. ELIGARD [Suspect]
     Active Substance: LEUPROLIDE ACETATE
     Dosage: 45 MG, 1X/6 MONTHS
     Route: 058
     Dates: start: 20190408
  5. ASCAL                              /00002702/ [Concomitant]
     Active Substance: ASPIRIN CALCIUM

REACTIONS (4)
  - Weight increased [Recovered/Resolved]
  - Haemorrhoids [Recovered/Resolved]
  - Hot flush [Recovering/Resolving]
  - Anal haemorrhage [Recovered/Resolved]

NARRATIVE: CASE EVENT DATE: 20181108
